FAERS Safety Report 12560613 (Version 1)
Quarter: 2016Q3

REPORT INFORMATION
  Report Type: Spontaneous
  Country: US (occurrence: US)
  Receive Date: 20160715
  Receipt Date: 20160715
  Transmission Date: 20161109
  Serious: No
  Sender: FDA-Public Use
  Company Number: US-JNJFOC-20160609966

PATIENT
  Sex: Female

DRUGS (4)
  1. WOMENS ROGAINE UNSCENTED [Suspect]
     Active Substance: MINOXIDIL
     Route: 061
  2. LOSARTAN. [Concomitant]
     Active Substance: LOSARTAN
     Indication: HYPERTENSION
     Dosage: 10 YEARS
     Route: 065
  3. WOMENS ROGAINE UNSCENTED [Suspect]
     Active Substance: MINOXIDIL
     Indication: ALOPECIA
     Dosage: ABOUT A HALF A CAPFUL
     Route: 061
  4. MINOXIDIL. [Suspect]
     Active Substance: MINOXIDIL
     Indication: ALOPECIA
     Route: 061

REACTIONS (4)
  - Contraindicated product administered [Recovered/Resolved]
  - Drug administration error [Recovered/Resolved]
  - Hair colour changes [Recovered/Resolved]
  - Drug administered at inappropriate site [Recovered/Resolved]
